FAERS Safety Report 22018552 (Version 7)
Quarter: 2025Q2

REPORT INFORMATION
  Report Type: Report from Study
  Country: CA (occurrence: CA)
  Receive Date: 20230222
  Receipt Date: 20250624
  Transmission Date: 20250717
  Serious: Yes (Hospitalization, Other)
  Sender: NOVARTIS
  Company Number: CA-002147023-NVSC2021CA069666

PATIENT
  Age: 68 Year
  Sex: Male

DRUGS (6)
  1. ELTROMBOPAG OLAMINE [Suspect]
     Active Substance: ELTROMBOPAG OLAMINE
     Indication: Immune thrombocytopenia
     Dosage: 25 MG, QD
     Route: 048
     Dates: start: 20201013, end: 20210302
  2. ELTROMBOPAG OLAMINE [Suspect]
     Active Substance: ELTROMBOPAG OLAMINE
     Dosage: 25 MG, BID
     Route: 048
     Dates: start: 20201019
  3. ELTROMBOPAG OLAMINE [Suspect]
     Active Substance: ELTROMBOPAG OLAMINE
     Route: 048
     Dates: start: 20201019
  4. ELTROMBOPAG OLAMINE [Suspect]
     Active Substance: ELTROMBOPAG OLAMINE
     Route: 048
  5. ELTROMBOPAG OLAMINE [Suspect]
     Active Substance: ELTROMBOPAG OLAMINE
     Dosage: 25MG, QD (2 DAYS THEN 3RD DAY OFF)
     Route: 048
  6. ASPIRIN [Concomitant]
     Active Substance: ASPIRIN
     Indication: Product used for unknown indication
     Route: 065

REACTIONS (15)
  - Cerebrovascular accident [Unknown]
  - Hemiplegia [Unknown]
  - Aphasia [Unknown]
  - Nephrolithiasis [Unknown]
  - Type 2 diabetes mellitus [Unknown]
  - Haemorrhage [Unknown]
  - Platelet count decreased [Unknown]
  - Deep vein thrombosis [Unknown]
  - Pancreatitis [Unknown]
  - Platelet count increased [Unknown]
  - Peripheral swelling [Unknown]
  - Off label use [Unknown]
  - Platelet count abnormal [Unknown]
  - Blood thyroid stimulating hormone increased [Unknown]
  - Iron deficiency anaemia [Unknown]

NARRATIVE: CASE EVENT DATE: 20230607
